FAERS Safety Report 6258996-1 (Version None)
Quarter: 2009Q3

REPORT INFORMATION
  Report Type: 
  Country: None (occurrence: None)
  Receive Date: 20090707
  Receipt Date: 20090623
  Transmission Date: 20100115
  Serious: Yes (Hospitalization)
  Sender: FDA-Public Use
  Company Number: PHHY2009ES25168

PATIENT
  Age: 83 Year
  Sex: Female

DRUGS (1)
  1. LOXIFAN [Suspect]
     Indication: NEOPLASM
     Dosage: 2.5 MG/DAY
     Dates: start: 20090118, end: 20090209

REACTIONS (1)
  - HEPATITIS [None]
